FAERS Safety Report 21816353 (Version 1)
Quarter: 2023Q1

REPORT INFORMATION
  Report Type: Spontaneous
  Country: US (occurrence: None)
  Receive Date: 20230103
  Receipt Date: 20230103
  Transmission Date: 20230417
  Serious: Yes (Life-Threatening, Hospitalization)
  Sender: FDA-Public Use
  Company Number: None

PATIENT
  Age: 25 Year
  Sex: Male
  Weight: 91 kg

DRUGS (1)
  1. BLEOMYCIN [Suspect]
     Active Substance: BLEOMYCIN SULFATE
     Indication: Testis cancer
     Dosage: OTHER FREQUENCY : WEEKLY;?
     Route: 041
     Dates: start: 20220828, end: 20221231

REACTIONS (2)
  - Pulmonary toxicity [None]
  - Hypoxia [None]

NARRATIVE: CASE EVENT DATE: 20221231
